FAERS Safety Report 5954464-2 (Version None)
Quarter: 2008Q4

REPORT INFORMATION
  Report Type: 
  Country: None (occurrence: None)
  Receive Date: 20081113
  Receipt Date: 20081113
  Transmission Date: 20090506
  Serious: Yes (Hospitalization)
  Sender: FDA-Public Use
  Company Number: None

PATIENT
  Sex: Female
  Weight: 82.27 kg

DRUGS (2)
  1. CARBOPLATIN [Suspect]
     Dosage: 476 MG
     Dates: start: 20081022, end: 20081022
  2. TAXOL [Suspect]
     Dosage: 350 MG
     Dates: end: 20081022

REACTIONS (25)
  - ANOREXIA [None]
  - BLOOD ALBUMIN DECREASED [None]
  - CANDIDIASIS [None]
  - DYSPHAGIA [None]
  - FAT NECROSIS [None]
  - HYPOALBUMINAEMIA [None]
  - HYPONATRAEMIA [None]
  - HYPOPHAGIA [None]
  - IMPAIRED HEALING [None]
  - INCISION SITE COMPLICATION [None]
  - INCISION SITE ERYTHEMA [None]
  - MALNUTRITION [None]
  - OEDEMA PERIPHERAL [None]
  - ORAL CANDIDIASIS [None]
  - ORAL PAIN [None]
  - OROPHARYNGEAL PAIN [None]
  - PITTING OEDEMA [None]
  - POST PROCEDURAL COMPLICATION [None]
  - POSTOPERATIVE WOUND COMPLICATION [None]
  - REFLUX GASTRITIS [None]
  - SKIN ULCER [None]
  - STOMATITIS [None]
  - UNEVALUABLE EVENT [None]
  - WOUND ABSCESS [None]
  - WOUND NECROSIS [None]
